FAERS Safety Report 13761544 (Version 2)
Quarter: 2017Q3

REPORT INFORMATION
  Report Type: Report from Study
  Country: US (occurrence: US)
  Receive Date: 20170717
  Receipt Date: 20170724
  Transmission Date: 20171127
  Serious: No
  Sender: FDA-Public Use
  Company Number: US-AMGEN-USASL2017104839

PATIENT
  Sex: Female

DRUGS (1)
  1. ENBREL [Suspect]
     Active Substance: ETANERCEPT
     Indication: RHEUMATOID ARTHRITIS
     Dosage: 50 MG, QWK (EVERY SUNDAY)
     Route: 065

REACTIONS (4)
  - Fatigue [Unknown]
  - Injection site bruising [Recovered/Resolved]
  - Headache [Unknown]
  - Intervertebral disc protrusion [Unknown]
